FAERS Safety Report 8536409-4 (Version None)
Quarter: 2012Q3

REPORT INFORMATION
  Report Type: 
  Country: None (occurrence: None)
  Receive Date: 20120725
  Receipt Date: 20120711
  Transmission Date: 20120928
  Serious: Yes (Death, Congenital Anomaly)
  Sender: FDA-Public Use
  Company Number: GB-MYLANLABS-2012S1014045

PATIENT

DRUGS (1)
  1. QUETIAPINE [Suspect]
     Route: 064

REACTIONS (3)
  - CONGENITAL ANOMALY [None]
  - FOETAL DEATH [None]
  - MATERNAL EXPOSURE DURING PREGNANCY [None]
